FAERS Safety Report 14669489 (Version 2)
Quarter: 2019Q1

REPORT INFORMATION
  Report Type: Spontaneous
  Country: RU (occurrence: RU)
  Receive Date: 20180322
  Receipt Date: 20190213
  Transmission Date: 20190417
  Serious: Yes (Hospitalization)
  Sender: FDA-Public Use
  Company Number: RU-SA-2018SA081846

PATIENT
  Age: 75 Year
  Sex: Male
  Weight: 81 kg

DRUGS (8)
  1. FRAXIPARINE [Suspect]
     Active Substance: NADROPARIN CALCIUM
     Dosage: 25 MG,QD
     Route: 065
  2. CHOLECALCIFEROL [Concomitant]
     Active Substance: CHOLECALCIFEROL
     Indication: OSTEOPOROSIS
     Dosage: UNK
     Route: 048
  3. ACTEMRA [Concomitant]
     Active Substance: TOCILIZUMAB
     Indication: VASCULITIS
  4. ACTEMRA [Concomitant]
     Active Substance: TOCILIZUMAB
     Indication: MYALGIA
  5. ACTEMRA [Concomitant]
     Active Substance: TOCILIZUMAB
     Indication: RHEUMATOID ARTHRITIS
     Dosage: UNK
     Route: 058
     Dates: start: 20140601
  6. CLEXANE [Suspect]
     Active Substance: ENOXAPARIN SODIUM
     Dosage: 25 MG,QD
     Route: 065
  7. QUETIAPINE FUMARATE. [Suspect]
     Active Substance: QUETIAPINE FUMARATE
     Dosage: 25 MG,QD
     Route: 065
  8. PROLIA [Concomitant]
     Active Substance: DENOSUMAB
     Indication: OSTEOPOROSIS
     Dosage: UNK
     Route: 058
     Dates: start: 201405

REACTIONS (6)
  - Depression [Recovering/Resolving]
  - Wound [Recovering/Resolving]
  - Leukopenia [Recovering/Resolving]
  - Neoplasm malignant [Recovering/Resolving]
  - Erysipelas [Recovering/Resolving]
  - Sleep disorder [Recovering/Resolving]

NARRATIVE: CASE EVENT DATE: 20140715
